FAERS Safety Report 16092939 (Version 2)
Quarter: 2019Q2

REPORT INFORMATION
  Report Type: Spontaneous
  Country: IT (occurrence: IT)
  Receive Date: 20190320
  Receipt Date: 20190405
  Transmission Date: 20190711
  Serious: Yes (Other)
  Sender: FDA-Public Use
  Company Number: IT-AUROBINDO-AUR-APL-2019-014478

PATIENT

DRUGS (5)
  1. LEVETIRACETAM FILM-COATED TABLET [Suspect]
     Active Substance: LEVETIRACETAM
     Indication: OFF LABEL USE
     Dosage: 2 UNK, ONCE A DAY 500 MG TABLET DIVIDED IN HALF IN THE MORNING AND IN THE EVENING
     Route: 065
  2. CORTISONE [Suspect]
     Active Substance: CORTISONE\HYDROCORTISONE
     Indication: ADVERSE DRUG REACTION
     Dosage: ABOUT 120 DROPS PER DAY
     Route: 065
  3. LEVETIRACETAM FILM-COATED TABLET [Suspect]
     Active Substance: LEVETIRACETAM
     Indication: SEIZURE PROPHYLAXIS
     Dosage: 1000 MILLIGRAM, ONCE A DAY(500 MG, 2X/DAY (BID))
     Route: 065
  4. CORTISONE [Suspect]
     Active Substance: CORTISONE\HYDROCORTISONE
     Dosage: UNK, 2X/DAY (BID)
     Route: 042
  5. LEVETIRACETAM FILM-COATED TABLET [Suspect]
     Active Substance: LEVETIRACETAM
     Dosage: 250 MG, 2X/DAY (BID)
     Route: 048
     Dates: start: 2012

REACTIONS (3)
  - Off label use [Unknown]
  - Metastases to central nervous system [Unknown]
  - Coma [Unknown]
